FAERS Safety Report 6970103-6 (Version None)
Quarter: 2010Q3

REPORT INFORMATION
  Report Type: 
  Country: None (occurrence: None)
  Receive Date: 20100908
  Receipt Date: 20100827
  Transmission Date: 20110219
  Serious: No
  Sender: FDA-Public Use
  Company Number: US-US-EMD SERONO, INC.-7014726

PATIENT
  Sex: Female
  Weight: 28 kg

DRUGS (2)
  1. SAIZEN [Suspect]
     Indication: GROWTH HORMONE DEFICIENCY
     Route: 058
     Dates: start: 20100422, end: 20100730
  2. SAIZEN [Suspect]
     Route: 058
     Dates: start: 20100730

REACTIONS (2)
  - FEBRILE CONVULSION [None]
  - INSULIN-LIKE GROWTH FACTOR INCREASED [None]
